FAERS Safety Report 8196346-4 (Version None)
Quarter: 2012Q1

REPORT INFORMATION
  Report Type: 
  Country: None (occurrence: None)
  Receive Date: 20120306
  Receipt Date: 20120222
  Transmission Date: 20120608
  Serious: Yes (Hospitalization)
  Sender: FDA-Public Use
  Company Number: 2012SP009704

PATIENT
  Sex: Female

DRUGS (5)
  1. NEXPLANON [Suspect]
     Indication: CONTRACEPTION
     Dates: start: 20120217
  2. FLUTICASONE PROPIONATE [Concomitant]
  3. SINGULAIR [Concomitant]
  4. SALMETEROL [Concomitant]
  5. VENTOLIN [Concomitant]

REACTIONS (2)
  - OXYGEN SATURATION DECREASED [None]
  - INFLUENZA LIKE ILLNESS [None]
